FAERS Safety Report 6822293-3 (Version None)
Quarter: 2010Q3

REPORT INFORMATION
  Report Type: 
  Country: None (occurrence: None)
  Receive Date: 20100707
  Receipt Date: 20100707
  Transmission Date: 20110219
  Serious: Yes (Other)
  Sender: FDA-Public Use
  Company Number: None

PATIENT
  Age: 42 Year
  Sex: Female
  Weight: 66.6788 kg

DRUGS (1)
  1. CLOBEX [Suspect]
     Indication: PSORIASIS
     Dosage: FINGER DAB 2/DAY TOP
     Route: 061
     Dates: start: 20100702, end: 20100703

REACTIONS (5)
  - CHOKING [None]
  - OROPHARYNGEAL PAIN [None]
  - PALPITATIONS [None]
  - RETCHING [None]
  - VOMITING [None]
